FAERS Safety Report 7531242-4 (Version None)
Quarter: 2011Q2

REPORT INFORMATION
  Report Type: 
  Country: None (occurrence: None)
  Receive Date: 20110608
  Receipt Date: 20110530
  Transmission Date: 20111010
  Serious: Yes (Hospitalization)
  Sender: FDA-Public Use
  Company Number: BR-BAYER-200923735LA

PATIENT
  Age: 21 Year
  Sex: Female

DRUGS (22)
  1. CLONAZEPAM [Suspect]
     Indication: SLEEP DISORDER THERAPY
     Dosage: 20 MG, QD
     Route: 048
     Dates: start: 20060101
  2. CLONAZEPAM [Suspect]
     Dosage: 0.5 MG, QD
     Route: 048
     Dates: start: 20070101, end: 20090101
  3. CLONAZEPAM [Suspect]
     Dosage: 0.5 MG, QD
     Route: 048
     Dates: end: 20100101
  4. AMYTRIL [Concomitant]
     Indication: SEDATIVE THERAPY
     Route: 048
     Dates: start: 20080101, end: 20091101
  5. ACETAMINOPHEN [Concomitant]
  6. CALMAN [Concomitant]
     Indication: SLEEP DISORDER THERAPY
     Route: 048
     Dates: start: 20100705, end: 20100719
  7. AMYTRIL [Concomitant]
     Indication: INSOMNIA
     Route: 048
     Dates: start: 20060101
  8. BETASERON [Suspect]
  9. AMYTRIL [Concomitant]
     Route: 048
     Dates: start: 20091101, end: 20100601
  10. ACETAMINOPHEN [Concomitant]
     Indication: PROPHYLAXIS
     Route: 048
     Dates: start: 20060601, end: 20100715
  11. ALBENDAZOLE [Concomitant]
     Indication: TREMOR
  12. BETASERON [Suspect]
     Indication: RELAPSING-REMITTING MULTIPLE SCLEROSIS
     Dosage: BETAJECT, 8 MIU, QOD
     Route: 058
     Dates: start: 20060601, end: 20100715
  13. AMITRIPTYLINE HCL [Concomitant]
     Indication: DEPRESSION
     Route: 048
     Dates: start: 20060101
  14. LABIRIN [Concomitant]
     Indication: PROPHYLAXIS
     Route: 048
     Dates: start: 20100701
  15. BETASERON [Suspect]
     Dosage: UNK
     Route: 058
     Dates: end: 20100715
  16. AMYTRIL [Concomitant]
     Indication: PARAESTHESIA
  17. BETASERON [Suspect]
     Dosage: UNK
     Route: 058
  18. AMANTADINE HCL [Concomitant]
     Indication: SLEEP DISORDER THERAPY
     Dosage: 100 MG, QD
     Route: 048
     Dates: start: 20070101, end: 20080101
  19. ALBENDAZOLE [Concomitant]
     Indication: THERAPEUTIC PROCEDURE
     Dosage: DAILY DOSE 3 DF
     Route: 048
     Dates: start: 20070101, end: 20070101
  20. AMYTRIL [Concomitant]
     Indication: TREMOR
  21. ALBENDAZOLE [Concomitant]
     Indication: PARAESTHESIA
     Dosage: DURING HOSPITALIZATION
     Route: 048
     Dates: start: 20091001, end: 20091001
  22. AMYTRIL [Concomitant]
     Indication: HYPOAESTHESIA

REACTIONS (29)
  - EYE MOVEMENT DISORDER [None]
  - URINARY INCONTINENCE [None]
  - INFLUENZA [None]
  - PRODUCTIVE COUGH [None]
  - MULTIPLE SCLEROSIS [None]
  - DIPLOPIA [None]
  - ARTHRALGIA [None]
  - MULTIPLE SCLEROSIS RELAPSE [None]
  - CHOKING [None]
  - FALL [None]
  - TREMOR [None]
  - INJECTION SITE PAIN [None]
  - INJURY [None]
  - SPEECH DISORDER [None]
  - PYREXIA [None]
  - HEADACHE [None]
  - MALAISE [None]
  - MEMORY IMPAIRMENT [None]
  - MENSTRUAL DISORDER [None]
  - BALANCE DISORDER [None]
  - HELMINTHIC INFECTION [None]
  - DIZZINESS [None]
  - DYSPHONIA [None]
  - JOINT SWELLING [None]
  - ARTHRITIS [None]
  - GAIT DISTURBANCE [None]
  - CONSTIPATION [None]
  - MUSCULAR WEAKNESS [None]
  - SKIN ATROPHY [None]
